FAERS Safety Report 8284057-6 (Version None)
Quarter: 2012Q2

REPORT INFORMATION
  Report Type: 
  Country: None (occurrence: None)
  Receive Date: 20120413
  Receipt Date: 20120217
  Transmission Date: 20120825
  Serious: No
  Sender: FDA-Public Use
  Company Number: US-ASTRAZENECA-2010SE24648

PATIENT
  Age: 75 Year
  Sex: Female

DRUGS (1)
  1. NEXIUM [Suspect]
     Dosage: TAKING 2 CAPSULES PER DAY INSTEAD OF 1 CAPSULE
     Route: 048

REACTIONS (4)
  - MACULAR DEGENERATION [None]
  - ADVERSE EVENT [None]
  - INCORRECT DOSE ADMINISTERED [None]
  - BLOOD CHOLESTEROL ABNORMAL [None]
